FAERS Safety Report 25538982 (Version 2)
Quarter: 2025Q3

REPORT INFORMATION
  Report Type: Spontaneous
  Country: GB (occurrence: GB)
  Receive Date: 20250710
  Receipt Date: 20250716
  Transmission Date: 20251020
  Serious: Yes (Hospitalization)
  Sender: MYLAN
  Company Number: GB-MYLANLABS-2025M1056908

PATIENT
  Sex: Male

DRUGS (36)
  1. CLOZARIL [Suspect]
     Active Substance: CLOZAPINE
     Indication: Schizophrenia
     Dates: start: 20010701, end: 20250627
  2. CLOZARIL [Suspect]
     Active Substance: CLOZAPINE
     Route: 048
     Dates: start: 20010701, end: 20250627
  3. CLOZARIL [Suspect]
     Active Substance: CLOZAPINE
     Route: 048
     Dates: start: 20010701, end: 20250627
  4. CLOZARIL [Suspect]
     Active Substance: CLOZAPINE
     Dates: start: 20010701, end: 20250627
  5. SENNA [Concomitant]
     Active Substance: SENNOSIDES
     Indication: Constipation
  6. SENNA [Concomitant]
     Active Substance: SENNOSIDES
     Route: 065
  7. SENNA [Concomitant]
     Active Substance: SENNOSIDES
     Route: 065
  8. SENNA [Concomitant]
     Active Substance: SENNOSIDES
  9. OMEPRAZOLE [Concomitant]
     Active Substance: OMEPRAZOLE
  10. OMEPRAZOLE [Concomitant]
     Active Substance: OMEPRAZOLE
     Route: 065
  11. OMEPRAZOLE [Concomitant]
     Active Substance: OMEPRAZOLE
     Route: 065
  12. OMEPRAZOLE [Concomitant]
     Active Substance: OMEPRAZOLE
  13. CARBOHYDRATES\FATTY ACIDS\MINERALS\PROTEIN\VITAMINS [Concomitant]
     Active Substance: CARBOHYDRATES\FATTY ACIDS\MINERALS\PROTEIN\VITAMINS
  14. CARBOHYDRATES\FATTY ACIDS\MINERALS\PROTEIN\VITAMINS [Concomitant]
     Active Substance: CARBOHYDRATES\FATTY ACIDS\MINERALS\PROTEIN\VITAMINS
     Route: 065
  15. CARBOHYDRATES\FATTY ACIDS\MINERALS\PROTEIN\VITAMINS [Concomitant]
     Active Substance: CARBOHYDRATES\FATTY ACIDS\MINERALS\PROTEIN\VITAMINS
     Route: 065
  16. CARBOHYDRATES\FATTY ACIDS\MINERALS\PROTEIN\VITAMINS [Concomitant]
     Active Substance: CARBOHYDRATES\FATTY ACIDS\MINERALS\PROTEIN\VITAMINS
  17. SIMVASTATIN [Concomitant]
     Active Substance: SIMVASTATIN
  18. SIMVASTATIN [Concomitant]
     Active Substance: SIMVASTATIN
     Route: 065
  19. SIMVASTATIN [Concomitant]
     Active Substance: SIMVASTATIN
     Route: 065
  20. SIMVASTATIN [Concomitant]
     Active Substance: SIMVASTATIN
  21. LACTULOSE [Concomitant]
     Active Substance: LACTULOSE
  22. LACTULOSE [Concomitant]
     Active Substance: LACTULOSE
     Route: 065
  23. LACTULOSE [Concomitant]
     Active Substance: LACTULOSE
     Route: 065
  24. LACTULOSE [Concomitant]
     Active Substance: LACTULOSE
  25. DOCUSATE [Concomitant]
     Active Substance: DOCUSATE
  26. DOCUSATE [Concomitant]
     Active Substance: DOCUSATE
     Route: 065
  27. DOCUSATE [Concomitant]
     Active Substance: DOCUSATE
     Route: 065
  28. DOCUSATE [Concomitant]
     Active Substance: DOCUSATE
  29. LEVOTHYROXINE [Concomitant]
     Active Substance: LEVOTHYROXINE
  30. LEVOTHYROXINE [Concomitant]
     Active Substance: LEVOTHYROXINE
     Route: 065
  31. LEVOTHYROXINE [Concomitant]
     Active Substance: LEVOTHYROXINE
     Route: 065
  32. LEVOTHYROXINE [Concomitant]
     Active Substance: LEVOTHYROXINE
  33. LAMOTRIGINE [Concomitant]
     Active Substance: LAMOTRIGINE
  34. LAMOTRIGINE [Concomitant]
     Active Substance: LAMOTRIGINE
     Route: 065
  35. LAMOTRIGINE [Concomitant]
     Active Substance: LAMOTRIGINE
     Route: 065
  36. LAMOTRIGINE [Concomitant]
     Active Substance: LAMOTRIGINE

REACTIONS (3)
  - Urinary retention [Unknown]
  - Hydronephrosis [Unknown]
  - Antipsychotic drug level increased [Unknown]
